FAERS Safety Report 4710579-8 (Version None)
Quarter: 2005Q3

REPORT INFORMATION
  Report Type: 
  Country: None (occurrence: None)
  Receive Date: 20050707
  Receipt Date: 20050429
  Transmission Date: 20060218
  Serious: Yes (Hospitalization)
  Sender: FDA-Public Use
  Company Number: PAR_0101_2005

PATIENT
  Age: 74 Year
  Sex: Female

DRUGS (6)
  1. ISOPTIN [Suspect]
     Dosage: DF PO
     Route: 048
  2. ACETAMINOPHEN [Suspect]
     Dosage: DF PO
     Route: 048
  3. URAPIDIL [Suspect]
     Dosage: 3 DF QDAY PO
     Route: 048
  4. PERINDOPRIL [Suspect]
     Dosage: 2 DF QDAY PO
     Route: 048
  5. FUROSEMIDE [Suspect]
     Dosage: 2 DF QDAY PO
     Route: 048
     Dates: end: 20050302
  6. GEMCITABINE [Suspect]
     Dosage: DF IV
     Route: 042
     Dates: start: 20050120, end: 20050120

REACTIONS (3)
  - CARDIAC FAILURE [None]
  - PULMONARY OEDEMA [None]
  - RENAL FAILURE [None]
